FAERS Safety Report 9863840 (Version 1)
Quarter: 2014Q1

REPORT INFORMATION
  Report Type: Spontaneous
  Country: US (occurrence: US)
  Receive Date: 20140203
  Receipt Date: 20140203
  Transmission Date: 20141002
  Serious: Yes (Other)
  Sender: FDA-Public Use
  Company Number: US-BAXTER-2014BAX004023

PATIENT
  Age: 24 Year
  Sex: Female

DRUGS (9)
  1. DIANEAL LOW CALCIUM [Suspect]
     Indication: PERITONEAL DIALYSIS
     Route: 033
     Dates: start: 201204
  2. DIANEAL LOW CALCIUM [Suspect]
     Dates: start: 201204
  3. DIANEAL LOW CALCIUM [Suspect]
     Indication: PERITONEAL DIALYSIS
     Route: 033
     Dates: start: 201204
  4. DIANEAL LOW CALCIUM [Suspect]
     Dates: start: 201204
  5. DIANEAL LOW CALCIUM [Suspect]
     Indication: CONVULSION
     Route: 033
     Dates: start: 201204
  6. DIANEAL LOW CALCIUM [Suspect]
     Dates: start: 201204
  7. DIANEAL LOW CALCIUM (ULTRABAG) [Suspect]
     Indication: PERITONEAL DIALYSIS
     Route: 033
  8. DIANEAL LOW CALCIUM (ULTRABAG) [Suspect]
     Indication: PERITONEAL DIALYSIS
     Route: 033
  9. DILANTIN [Concomitant]
     Indication: CONVULSION
     Route: 048

REACTIONS (2)
  - Convulsion [Recovered/Resolved]
  - Weight increased [Recovered/Resolved]
